FAERS Safety Report 4954799-6 (Version None)
Quarter: 2006Q1

REPORT INFORMATION
  Report Type: 
  Country: None (occurrence: None)
  Receive Date: 20060327
  Receipt Date: 20050208
  Transmission Date: 20060701
  Serious: Yes (Hospitalization, Disabling)
  Sender: FDA-Public Use
  Company Number: US-MERCK-0502USA01081

PATIENT
  Age: 60 Year
  Sex: Female
  Weight: 82 kg

DRUGS (5)
  1. VIOXX [Suspect]
     Indication: ARTHRALGIA
     Route: 048
  2. VIOXX [Suspect]
     Route: 048
  3. TYLENOL [Concomitant]
     Route: 065
  4. EXCEDRIN (MIGRAINE) [Concomitant]
     Route: 065
  5. ASPIRIN [Concomitant]
     Route: 065

REACTIONS (2)
  - MYOCARDIAL INFARCTION [None]
  - ROAD TRAFFIC ACCIDENT [None]
